FAERS Safety Report 5000762-9 (Version None)
Quarter: 2006Q2

REPORT INFORMATION
  Report Type: 
  Country: None (occurrence: None)
  Receive Date: 20060512
  Receipt Date: 20060503
  Transmission Date: 20061013
  Serious: Yes (Hospitalization)
  Sender: FDA-Public Use
  Company Number: PHBS2006BE06712

PATIENT
  Age: 4 Year
  Sex: Male

DRUGS (4)
  1. RITALIN [Suspect]
     Indication: ATTENTION DEFICIT/HYPERACTIVITY DISORDER
     Dosage: 5 MG, BID
     Route: 048
     Dates: start: 20051201
  2. RITALIN [Suspect]
     Dosage: 2.5 MG, BID
     Route: 048
  3. RITALIN [Suspect]
     Dosage: 2.5 MG, QD
     Route: 048
  4. ZADITEN [Concomitant]

REACTIONS (4)
  - AFFECTIVE DISORDER [None]
  - ANOREXIA [None]
  - METABOLIC DISORDER [None]
  - SLEEP DISORDER [None]
